FAERS Safety Report 4582587-1 (Version None)
Quarter: 2005Q1

REPORT INFORMATION
  Report Type: 
  Country: None (occurrence: None)
  Receive Date: 20050211
  Receipt Date: 20050211
  Transmission Date: 20050727
  Serious: Yes (Hospitalization)
  Sender: FDA-Public Use
  Company Number: None

PATIENT
  Age: 81 Year
  Sex: Male
  Weight: 67.586 kg

DRUGS (1)
  1. SILDENEFIL [Suspect]
     Dosage: 75 MGM PO TID
     Route: 048
     Dates: start: 20041201

REACTIONS (4)
  - DUODENAL ULCER [None]
  - GASTRIC ULCER [None]
  - HAEMATOCRIT DECREASED [None]
  - MELAENA [None]
